FAERS Safety Report 7785834-8 (Version None)
Quarter: 2011Q3

REPORT INFORMATION
  Report Type: 
  Country: None (occurrence: None)
  Receive Date: 20110929
  Receipt Date: 20110926
  Transmission Date: 20111222
  Serious: Yes (Life-Threatening)
  Sender: FDA-Public Use
  Company Number: DE-SANOFI-AVENTIS-2011SA062610

PATIENT
  Sex: Female

DRUGS (2)
  1. METHOTREXATE SODIUM [Suspect]
  2. HYDROXYCHLOROQUINE SULFATE [Suspect]
     Route: 048
     Dates: start: 20080312

REACTIONS (1)
  - LONG QT SYNDROME [None]
